FAERS Safety Report 10330609 (Version 3)
Quarter: 2014Q4

REPORT INFORMATION
  Report Type: Spontaneous
  Country: US (occurrence: US)
  Receive Date: 20140722
  Receipt Date: 20141230
  Transmission Date: 20150528
  Serious: Yes (Death, Hospitalization, Disabling, Other)
  Sender: FDA-Public Use
  Company Number: US-UCBSA-2014005322

PATIENT
  Age: 81 Year
  Sex: Female
  Weight: 70.3 kg

DRUGS (5)
  1. VIMPAT [Suspect]
     Active Substance: LACOSAMIDE
     Dosage: 50 MG, 2X/DAY (BID)
     Route: 048
     Dates: start: 201406, end: 20140714
  2. WARFARIN [Concomitant]
     Active Substance: WARFARIN
     Indication: ANTICOAGULANT THERAPY
     Dosage: 3.75 MG, ONCE DAILY (QD)
     Route: 048
     Dates: start: 201405
  3. VIMPAT [Suspect]
     Active Substance: LACOSAMIDE
     Dosage: 50MG DAILY
     Route: 048
     Dates: start: 20140714, end: 20140827
  4. VIMPAT [Suspect]
     Active Substance: LACOSAMIDE
     Dosage: UNK
  5. VIMPAT [Suspect]
     Active Substance: LACOSAMIDE
     Indication: PARTIAL SEIZURES
     Dosage: 50 MG, ONCE DAILY (QD)
     Route: 048
     Dates: start: 20140529, end: 2014

REACTIONS (11)
  - Insomnia [Not Recovered/Not Resolved]
  - Mental status changes [Not Recovered/Not Resolved]
  - Deafness [Recovered/Resolved]
  - Dyspnoea [Not Recovered/Not Resolved]
  - Pyelonephritis [Not Recovered/Not Resolved]
  - Cardiac failure congestive [Fatal]
  - Atrial fibrillation [Not Recovered/Not Resolved]
  - Inappropriate schedule of drug administration [Unknown]
  - International normalised ratio decreased [Not Recovered/Not Resolved]
  - Fatigue [Not Recovered/Not Resolved]
  - Nausea [Not Recovered/Not Resolved]

NARRATIVE: CASE EVENT DATE: 20140529
